FAERS Safety Report 11795072 (Version 1)
Quarter: 2015Q4

REPORT INFORMATION
  Report Type: Spontaneous
  Country: AT (occurrence: AT)
  Receive Date: 20151202
  Receipt Date: 20151202
  Transmission Date: 20160305
  Serious: Yes (Hospitalization)
  Sender: FDA-Public Use
  Company Number: AT-ABBVIE-15P-009-1509378-00

PATIENT
  Sex: Male

DRUGS (1)
  1. DUODOPA [Suspect]
     Active Substance: CARBIDOPA\LEVODOPA
     Indication: PARKINSON^S DISEASE
     Dosage: 16 HOUR THERAPY: MD: 10.0 ML, CR: 4.2 ML/H, ED: 1.7 ML
     Route: 065
     Dates: start: 20140518

REACTIONS (2)
  - Knee arthroplasty [Unknown]
  - Device connection issue [Unknown]
